FAERS Safety Report 14902637 (Version 1)
Quarter: 2018Q2

REPORT INFORMATION
  Report Type: Spontaneous
  Country: US (occurrence: US)
  Receive Date: 20180516
  Receipt Date: 20180516
  Transmission Date: 20180711
  Serious: No
  Sender: FDA-Public Use
  Company Number: US-SA-2017SA086226

PATIENT
  Age: 77 Year
  Sex: Female
  Weight: 1.47 kg

DRUGS (7)
  1. SYMLIN [Concomitant]
     Active Substance: PRAMLINTIDE ACETATE
     Dosage: DOSE:15 UNIT(S)
  2. NOVOLOG [Concomitant]
     Active Substance: INSULIN ASPART
     Dosage: 15-15-30
  3. LANTUS [Suspect]
     Active Substance: INSULIN GLARGINE
     Indication: DIABETES MELLITUS
     Route: 051
     Dates: start: 1997
  4. FLEXPEN [Concomitant]
     Active Substance: UNSPECIFIED INGREDIENT
  5. DOXEPIN [Concomitant]
     Active Substance: DOXEPIN
     Dosage: 1 EACH EVENING
  6. FUROSEMIDE. [Concomitant]
     Active Substance: FUROSEMIDE
  7. IRBESARTAN. [Concomitant]
     Active Substance: IRBESARTAN

REACTIONS (2)
  - Product storage error [Unknown]
  - Drug ineffective [Unknown]
